FAERS Safety Report 9946269 (Version 1)
Quarter: 2014Q1

REPORT INFORMATION
  Report Type: Spontaneous
  Country: US (occurrence: US)
  Receive Date: 20140303
  Receipt Date: 20140303
  Transmission Date: 20141002
  Serious: No
  Sender: FDA-Public Use
  Company Number: US-AMGEN-USASP2014005985

PATIENT
  Age: 53 Year
  Sex: Female

DRUGS (1)
  1. ENBREL [Suspect]
     Indication: RHEUMATOID ARTHRITIS
     Dosage: 50 MG, QWK
     Route: 058

REACTIONS (6)
  - Rheumatoid arthritis [Unknown]
  - Influenza [Unknown]
  - Bronchitis [Unknown]
  - Sinusitis [Unknown]
  - Ear infection [Unknown]
  - Nasopharyngitis [Unknown]
